FAERS Safety Report 24731597 (Version 1)
Quarter: 2024Q4

REPORT INFORMATION
  Report Type: Spontaneous
  Country: CN (occurrence: CN)
  Receive Date: 20241213
  Receipt Date: 20241213
  Transmission Date: 20250115
  Serious: Yes (Life-Threatening, Other)
  Sender: BRISTOL-MYERS SQUIBB COMPANY
  Company Number: CN-MLMSERVICE-20241202-PI276282-00255-1

PATIENT
  Age: 58 Year
  Sex: Male

DRUGS (11)
  1. PACLITAXEL [Suspect]
     Active Substance: PACLITAXEL
     Indication: Lung squamous cell carcinoma stage IV
     Dosage: THERAPY END DATE: -APR-2023
     Dates: start: 20230410
  2. PACLITAXEL [Suspect]
     Active Substance: PACLITAXEL
     Dosage: 450 MG ON DAY 1 EVERY 3 WEEKS
     Dates: start: 20230429, end: 20230429
  3. PACLITAXEL [Suspect]
     Active Substance: PACLITAXEL
     Dosage: 450 MG ON DAY 1 EVERY 3 WEEKS
     Dates: start: 20230524, end: 20230524
  4. PACLITAXEL [Suspect]
     Active Substance: PACLITAXEL
     Dosage: 450 MG ON DAY 1 EVERY 3 WEEKS
     Dates: start: 20230617, end: 20230617
  5. CISPLATIN [Suspect]
     Active Substance: CISPLATIN
     Indication: Lung squamous cell carcinoma stage IV
     Dosage: THERAPY END DATE: -APR-2023
     Dates: start: 20230410
  6. CARBOPLATIN [Suspect]
     Active Substance: CARBOPLATIN
     Indication: Lung squamous cell carcinoma stage IV
     Dosage: 550 MG ON DAY 1 EVERY 3 WEEKS
     Dates: start: 20230429, end: 20230429
  7. CARBOPLATIN [Suspect]
     Active Substance: CARBOPLATIN
     Dosage: 550 MG ON DAY 1 EVERY 3 WEEKS
     Dates: start: 20230524, end: 20230524
  8. CARBOPLATIN [Suspect]
     Active Substance: CARBOPLATIN
     Dosage: 550 MG ON DAY 1 EVERY 3 WEEKS
     Dates: start: 20230617, end: 20230617
  9. PEMBROLIZUMAB [Suspect]
     Active Substance: PEMBROLIZUMAB
     Indication: Lung squamous cell carcinoma stage IV
     Dates: start: 20230429, end: 20230429
  10. PEMBROLIZUMAB [Suspect]
     Active Substance: PEMBROLIZUMAB
     Dates: start: 20230524, end: 20230524
  11. PEMBROLIZUMAB [Suspect]
     Active Substance: PEMBROLIZUMAB
     Dates: start: 20230617, end: 20230617

REACTIONS (1)
  - Myelosuppression [Unknown]

NARRATIVE: CASE EVENT DATE: 20230101
